FAERS Safety Report 7386645-8 (Version None)
Quarter: 2011Q1

REPORT INFORMATION
  Report Type: 
  Country: None (occurrence: None)
  Receive Date: 20110329
  Receipt Date: 20110329
  Transmission Date: 20110831
  Serious: Yes (Death)
  Sender: FDA-Public Use
  Company Number: None

PATIENT
  Age: 48 Year
  Sex: Female
  Weight: 76.2043 kg

DRUGS (1)
  1. FENTANYL [Suspect]
     Indication: MUSCULOSKELETAL PAIN
     Dosage: 50 MCG EVERY 3 DAYS TRANSDERMAL
     Route: 062
     Dates: start: 20101125, end: 20101127

REACTIONS (1)
  - OVERDOSE [None]
